FAERS Safety Report 6327721-8 (Version None)
Quarter: 2009Q3

REPORT INFORMATION
  Report Type: 
  Country: None (occurrence: None)
  Receive Date: 20090817
  Receipt Date: 20090805
  Transmission Date: 20100115
  Serious: Yes (Other)
  Sender: FDA-Public Use
  Company Number: AEUSA200900233

PATIENT
  Age: 42 Year
  Sex: Female

DRUGS (2)
  1. GAMUNEX [Suspect]
     Indication: IDIOPATHIC THROMBOCYTOPENIC PURPURA
     Dosage: 30 GM; QOW; IV
     Route: 042
     Dates: start: 20020101
  2. GAMUNEX [Suspect]
     Indication: SYSTEMIC LUPUS ERYTHEMATOSUS
     Dosage: 30 GM; QOW; IV
     Route: 042
     Dates: start: 20020101

REACTIONS (1)
  - HERPES SIMPLEX SEROLOGY POSITIVE [None]
